FAERS Safety Report 4924145-2 (Version None)
Quarter: 2006Q1

REPORT INFORMATION
  Report Type: 
  Country: None (occurrence: None)
  Receive Date: 20060227
  Receipt Date: 20051121
  Transmission Date: 20060701
  Serious: Yes (Hospitalization, Disabling, Other)
  Sender: FDA-Public Use
  Company Number: US-GLAXOSMITHKLINE-A0583417A

PATIENT
  Sex: Female

DRUGS (2)
  1. WELLBUTRIN XL [Suspect]
     Indication: SEXUAL DYSFUNCTION
     Dosage: 150MG PER DAY
     Route: 048
  2. LEXAPRO [Concomitant]

REACTIONS (1)
  - CONVULSION [None]
